FAERS Safety Report 19361614 (Version 1)
Quarter: 2021Q2

REPORT INFORMATION
  Report Type: Spontaneous
  Country: US (occurrence: US)
  Receive Date: 20210601
  Receipt Date: 20210601
  Transmission Date: 20210717
  Serious: No
  Sender: FDA-Public Use
  Company Number: US-ASTRAZENECA-2021A405409

PATIENT
  Age: 24182 Day
  Sex: Male
  Weight: 117.9 kg

DRUGS (10)
  1. MULTIVITAMIN, FOR MEN [Concomitant]
     Indication: SUPPLEMENTATION THERAPY
  2. ROSUVASTATIN CALCIUM. [Concomitant]
     Active Substance: ROSUVASTATIN CALCIUM
     Indication: BLOOD CHOLESTEROL INCREASED
  3. FLONASE ? FLUTICASONE [Concomitant]
     Indication: SINUS DISORDER
  4. METFORMIN [Concomitant]
     Active Substance: METFORMIN HYDROCHLORIDE
  5. TESTOSTERONE. [Concomitant]
     Active Substance: TESTOSTERONE
     Dosage: HE GETS PELLET SHOTS FOR TESTOSTERONE ABOUT ONCE OR TWICE A YEAR
  6. LEVOTHYROXINE. [Concomitant]
     Active Substance: LEVOTHYROXINE
     Indication: THYROID DISORDER
  7. VITAMIN COMPLEX (VITAMINS C, E, B12, D2, AND K) [Concomitant]
     Indication: SUPPLEMENTATION THERAPY
  8. ALLOPURINOL. [Concomitant]
     Active Substance: ALLOPURINOL
     Indication: GOUT
  9. BYDUREON BCISE [Suspect]
     Active Substance: EXENATIDE
     Indication: BLOOD GLUCOSE FLUCTUATION
     Route: 058
     Dates: start: 202102
  10. DUTASTERIDE?TAMSULOSIN [Concomitant]
     Active Substance: DUTASTERIDE\TAMSULOSIN HYDROCHLORIDE
     Indication: URINE ABNORMALITY

REACTIONS (5)
  - Injection site induration [Unknown]
  - Device leakage [Unknown]
  - Drug delivery system malfunction [Unknown]
  - Injection site swelling [Unknown]
  - Drug dose omission by device [Unknown]

NARRATIVE: CASE EVENT DATE: 20210501
